FAERS Safety Report 13791651 (Version 1)
Quarter: 2017Q3

REPORT INFORMATION
  Report Type: Spontaneous
  Country: FR (occurrence: FR)
  Receive Date: 20170725
  Receipt Date: 20170725
  Transmission Date: 20171127
  Serious: Yes (Death, Congenital Anomaly)
  Sender: FDA-Public Use
  Company Number: PHHY2017FR108237

PATIENT
  Sex: Male
  Weight: 1.8 kg

DRUGS (3)
  1. LARGACTIL [Suspect]
     Active Substance: CHLORPROMAZINE
     Indication: FOETAL EXPOSURE DURING PREGNANCY
     Dosage: UNK
     Route: 064
     Dates: start: 20160702, end: 20170220
  2. TEGRETOL [Suspect]
     Active Substance: CARBAMAZEPINE
     Indication: FOETAL EXPOSURE DURING PREGNANCY
     Dosage: UNK
     Route: 064
     Dates: start: 20160702, end: 20170220
  3. HALDOL [Suspect]
     Active Substance: HALOPERIDOL
     Indication: FOETAL EXPOSURE DURING PREGNANCY
     Dosage: UNK
     Route: 064
     Dates: start: 20160702, end: 20170220

REACTIONS (4)
  - Double outlet right ventricle [Fatal]
  - Univentricular heart [Fatal]
  - Hypertrophic cardiomyopathy [Fatal]
  - Mitral valve atresia [Fatal]
